FAERS Safety Report 9130397 (Version 2)
Quarter: 2013Q1

REPORT INFORMATION
  Report Type: Spontaneous
  Country: US (occurrence: US)
  Receive Date: 20130228
  Receipt Date: 20130326
  Transmission Date: 20140127
  Serious: No
  Sender: FDA-Public Use
  Company Number: US-BAYER-2013-025718

PATIENT
  Age: 29 Year
  Sex: Male

DRUGS (1)
  1. MAGNEVIST [Suspect]
     Indication: NUCLEAR MAGNETIC RESONANCE IMAGING ABDOMINAL
     Dosage: 15 CC^S ADMINISTERED IV BACK OF RIGHT HAND
     Route: 042
     Dates: start: 20130226, end: 20130226

REACTIONS (3)
  - Phlebitis [None]
  - Rash macular [None]
  - Rash macular [None]
